FAERS Safety Report 7356283-1 (Version None)
Quarter: 2011Q1

REPORT INFORMATION
  Report Type: 
  Country: None (occurrence: None)
  Receive Date: 20110316
  Receipt Date: 20110121
  Transmission Date: 20110831
  Serious: Yes (Hospitalization)
  Sender: FDA-Public Use
  Company Number: US-BAYER-2011-022901

PATIENT
  Sex: Female
  Weight: 63.492 kg

DRUGS (1)
  1. YAZ [Suspect]
     Indication: CONTRACEPTION
     Dosage: UNK UNK, QD
     Dates: start: 20081101, end: 20090301

REACTIONS (2)
  - CHOLELITHIASIS [None]
  - CHOLECYSTITIS CHRONIC [None]
